FAERS Safety Report 5718995-2 (Version None)
Quarter: 2008Q2

REPORT INFORMATION
  Report Type: 
  Country: None (occurrence: None)
  Receive Date: 20080425
  Receipt Date: 20080418
  Transmission Date: 20081010
  Serious: Yes (Other)
  Sender: FDA-Public Use
  Company Number: PHHY2008JP05802

PATIENT
  Sex: Male

DRUGS (1)
  1. LUDIOMIL [Suspect]
     Indication: INSOMNIA
     Dosage: 20 MG/DAY
     Route: 048

REACTIONS (1)
  - ILEUS [None]
